FAERS Safety Report 17899622 (Version 1)
Quarter: 2020Q2

REPORT INFORMATION
  Report Type: Other
  Country: HU (occurrence: HU)
  Receive Date: 20200616
  Receipt Date: 20200616
  Transmission Date: 20200714
  Serious: Yes (Death)
  Sender: FDA-Public Use
  Company Number: HU-DEXPHARM-20200494

PATIENT
  Age: 47 Year
  Sex: Female

DRUGS (8)
  1. BENZATROPINE [Interacting]
     Active Substance: BENZTROPINE
  2. VENLAFAXINE [Suspect]
     Active Substance: VENLAFAXINE HYDROCHLORIDE
  3. CHLORPROMAZINE. [Interacting]
     Active Substance: CHLORPROMAZINE
  4. OXAZEPAM. [Interacting]
     Active Substance: OXAZEPAM
  5. OXYCODONE [Interacting]
     Active Substance: OXYCODONE
  6. PREGABALIN. [Interacting]
     Active Substance: PREGABALIN
  7. QUETIAPINE. [Interacting]
     Active Substance: QUETIAPINE
  8. ZUCLOPENTHIXOL [Interacting]
     Active Substance: ZUCLOPENTHIXOL

REACTIONS (1)
  - Drug interaction [Fatal]
